FAERS Safety Report 10575481 (Version 1)
Quarter: 2014Q4

REPORT INFORMATION
  Report Type: Spontaneous
  Country: TR (occurrence: None)
  Receive Date: 20141107
  Receipt Date: 20141107
  Transmission Date: 20150529
  Serious: Yes (Death, Other)
  Sender: FDA-Public Use
  Company Number: 2014ECL00013

PATIENT
  Age: 6 Week
  Sex: Female
  Weight: 1 kg

DRUGS (2)
  1. CYCLOPENTOLATE [Suspect]
     Active Substance: CYCLOPENTOLATE
     Indication: OPHTHALMOLOGICAL EXAMINATION
     Route: 047
  2. PHENYLEPHRINE [Suspect]
     Active Substance: PHENYLEPHRINE\PHENYLEPHRINE HYDROCHLORIDE
     Indication: OPHTHALMOLOGICAL EXAMINATION
     Route: 047

REACTIONS (10)
  - Pneumatosis intestinalis [None]
  - Abdominal distension [None]
  - Cardiac arrest [None]
  - Oxygen saturation decreased [None]
  - Necrotising colitis [None]
  - Tachycardia [None]
  - Leukopenia [None]
  - Livedo reticularis [None]
  - Tachypnoea [None]
  - Neutropenia [None]
